FAERS Safety Report 15593189 (Version 8)
Quarter: 2020Q1

REPORT INFORMATION
  Report Type: Spontaneous
  Country: US (occurrence: US)
  Receive Date: 20181107
  Receipt Date: 20200327
  Transmission Date: 20200409
  Serious: Yes (Hospitalization, Other)
  Sender: FDA-Public Use
  Company Number: US-PFIZER INC-2018444508

PATIENT
  Age: 65 Year
  Sex: Male
  Weight: 104.3 kg

DRUGS (12)
  1. PHENYTOIN SODIUM. [Suspect]
     Active Substance: PHENYTOIN SODIUM
     Dosage: 600 MG, DAILY, (100 MG, 6 CAPS, PO (PER ORAL), QD(ONCE A DAY))
     Route: 048
  2. ZANAFLEX [Concomitant]
     Active Substance: TIZANIDINE HYDROCHLORIDE
     Dosage: 4 MG, AS NEEDED(TAKE 1 TABLET (4 MG) BY MOUTH 3 TIMES PER DAY AS NEEDED.)
     Route: 048
     Dates: start: 20170928
  3. ATENOLOL. [Concomitant]
     Active Substance: ATENOLOL
     Indication: HYPERTENSION
     Dosage: 50 MG, DAILY
     Route: 048
     Dates: start: 20170101
  4. HYDROCODONE [Concomitant]
     Active Substance: HYDROCODONE
     Indication: BACK PAIN
     Dosage: UNK, 4X/DAY
  5. METFORMIN HCL [Concomitant]
     Active Substance: METFORMIN HYDROCHLORIDE
     Indication: DIABETES MELLITUS
     Dosage: 1000 MG, 2X/DAY(TAKE 1 TABLET (1,000 MG) BY MOUTH 2 TIMES PER DAY WITH MEALS)
     Route: 048
  6. VITAMIN B-COMPLEX [VITAMIN B COMPLEX] [Concomitant]
     Dosage: UNK
     Route: 048
  7. PHENYTOIN SODIUM. [Suspect]
     Active Substance: PHENYTOIN SODIUM
     Indication: SEIZURE
     Dosage: 100 MG, DAILY
     Route: 048
  8. VITAMIN D [COLECALCIFEROL] [Concomitant]
     Active Substance: CHOLECALCIFEROL
     Dosage: UNK, DAILY(TAKE 1 TABLET (2,000 UNITS))
     Route: 048
  9. LOSARTAN POTASSIUM/HYDROCHLOROTHIAZIDE [Concomitant]
     Active Substance: HYDROCHLOROTHIAZIDE\LOSARTAN POTASSIUM
     Indication: HYPERTENSION
     Dosage: 1 DF, 2X/DAY
     Route: 048
  10. AMLODIPINE BESYLATE. [Concomitant]
     Active Substance: AMLODIPINE BESYLATE
     Indication: HYPERTENSION
     Dosage: 10 MG, DAILY
     Route: 048
  11. LIPITOR [Concomitant]
     Active Substance: ATORVASTATIN CALCIUM
     Indication: HYPERCHOLESTEROLAEMIA
     Dosage: 80 MG, DAILY
     Route: 048
  12. NORCO [Concomitant]
     Active Substance: ACETAMINOPHEN\HYDROCODONE BITARTRATE
     Indication: PAIN
     Dosage: 1 DF, AS NEEDED(1 PO (PER ORAL) QID (FOUR TIMES A DAY) PRN (AS NEEDED))
     Route: 048

REACTIONS (5)
  - Drug level decreased [Unknown]
  - Malaise [Unknown]
  - Diabetic coma [Recovered/Resolved]
  - Drug hypersensitivity [Unknown]
  - Drug ineffective [Recovered/Resolved]
